FAERS Safety Report 4538298-1 (Version None)
Quarter: 2004Q4

REPORT INFORMATION
  Report Type: 
  Country: None (occurrence: None)
  Receive Date: 20041221
  Receipt Date: 20041207
  Transmission Date: 20050328
  Serious: No
  Sender: FDA-Public Use
  Company Number: 2004-BP-13281BP

PATIENT
  Age: 80 Year
  Sex: Male

DRUGS (13)
  1. FLOMAX [Suspect]
     Indication: BENIGN PROSTATIC HYPERPLASIA
     Dosage: 0.4 MG (0.4 MG), PO
     Route: 048
     Dates: start: 19960101
  2. ACTOS [Concomitant]
  3. NORVASC [Concomitant]
  4. METOPROLOL TARTRATE [Concomitant]
  5. LACTULOSE [Concomitant]
  6. SENNA (SENNA ALEXANDRINA) [Concomitant]
  7. ARICEPT [Concomitant]
  8. B12 [Concomitant]
  9. VITAMIN E [Concomitant]
  10. TRAVATAN (TRAVOPROST) [Concomitant]
  11. TIMOLOL MALEATE [Concomitant]
  12. EPOGEN [Concomitant]
  13. LASIX [Concomitant]

REACTIONS (1)
  - PANCREATIC CARCINOMA [None]
